FAERS Safety Report 22108451 (Version 6)
Quarter: 2023Q2

REPORT INFORMATION
  Report Type: Report from Study
  Country: SE (occurrence: None)
  Receive Date: 20230317
  Receipt Date: 20230526
  Transmission Date: 20230721
  Serious: Yes (Hospitalization)
  Sender: FDA-Public Use
  Company Number: SE-ROCHE-3308090

PATIENT
  Age: 63 Year
  Sex: Female
  Weight: 83.6 kg

DRUGS (2)
  1. ATEZOLIZUMAB [Suspect]
     Active Substance: ATEZOLIZUMAB
     Indication: Malignant melanoma
     Dosage: THE LAST DOSE OF ATEZOLIZUMAB PRIOR TO THE ONSET OF THE SAE WAS ON 15/FEB/2023 AND TOOK 30 MINUTES T
     Route: 042
     Dates: start: 20221124
  2. ELIQUIS [Concomitant]
     Active Substance: APIXABAN
     Indication: Thrombosis
     Dates: start: 20230214

REACTIONS (1)
  - Salmonellosis [Recovered/Resolved]

NARRATIVE: CASE EVENT DATE: 20230228
